FAERS Safety Report 10732369 (Version 1)
Quarter: 2015Q1

REPORT INFORMATION
  Report Type: Spontaneous
  Country: US (occurrence: US)
  Receive Date: 20150123
  Receipt Date: 20150123
  Transmission Date: 20150721
  Serious: No
  Sender: FDA-Public Use
  Company Number: US-BAYER-2015-010340

PATIENT
  Age: 65 Year
  Sex: Male

DRUGS (1)
  1. ALEVE [Suspect]
     Active Substance: NAPROXEN SODIUM
     Indication: INFLAMMATION
     Dosage: UNK
     Route: 048
     Dates: start: 201501

REACTIONS (1)
  - Medication error [Unknown]

NARRATIVE: CASE EVENT DATE: 201501
